FAERS Safety Report 7550870-3 (Version None)
Quarter: 2011Q2

REPORT INFORMATION
  Report Type: 
  Country: None (occurrence: None)
  Receive Date: 20110616
  Receipt Date: 20110613
  Transmission Date: 20111010
  Serious: Yes (Other)
  Sender: FDA-Public Use
  Company Number: US-PFIZER INC-2011129729

PATIENT
  Sex: Female

DRUGS (1)
  1. CHANTIX [Suspect]
     Dosage: UNK
     Dates: start: 20090701

REACTIONS (4)
  - DEPRESSION [None]
  - ABNORMAL DREAMS [None]
  - LOSS OF CONSCIOUSNESS [None]
  - ANXIETY [None]
